FAERS Safety Report 12946498 (Version 1)
Quarter: 2016Q4

REPORT INFORMATION
  Report Type: Spontaneous
  Country: US (occurrence: US)
  Receive Date: 20161116
  Receipt Date: 20161116
  Transmission Date: 20170207
  Serious: Yes (Other)
  Sender: FDA-Public Use
  Company Number: US-APOTEX-2016AP014412

PATIENT
  Sex: Female

DRUGS (2)
  1. CELECOXIB. [Suspect]
     Active Substance: CELECOXIB
     Dosage: 100 MG, QD
     Route: 048
     Dates: start: 20160927
  2. CELECOXIB. [Suspect]
     Active Substance: CELECOXIB
     Indication: MIGRAINE
     Dosage: 200 MG, QD
     Route: 048
     Dates: end: 20160926

REACTIONS (3)
  - Anxiety [Not Recovered/Not Resolved]
  - Cardiac disorder [Unknown]
  - Dizziness [Recovering/Resolving]

NARRATIVE: CASE EVENT DATE: 20161005
